FAERS Safety Report 15113485 (Version 3)
Quarter: 2018Q3

REPORT INFORMATION
  Report Type: Spontaneous
  Country: RO (occurrence: RO)
  Receive Date: 20180706
  Receipt Date: 20180809
  Transmission Date: 20181010
  Serious: Yes (Hospitalization)
  Sender: FDA-Public Use
  Company Number: RO-AMGEN-ROUSP2018090845

PATIENT
  Age: 14 Year
  Sex: Female
  Weight: 60 kg

DRUGS (3)
  1. ENBREL [Suspect]
     Active Substance: ETANERCEPT
     Dosage: 50 MG, 1 INJECTION PER WEEK
     Route: 065
     Dates: start: 20120217, end: 201712
  2. ENBREL [Suspect]
     Active Substance: ETANERCEPT
     Indication: PSORIASIS
     Dosage: 50 MG, 1 INJECTION PER WEEK
     Route: 065
     Dates: start: 20120217, end: 201712
  3. NEOTIGASON [Concomitant]
     Active Substance: ACITRETIN
     Dosage: AT 10MG ALTERNATING WITH 20 MG
     Dates: start: 20170820

REACTIONS (7)
  - Cholecystitis [Recovered/Resolved]
  - Colitis [Recovered/Resolved]
  - Drug ineffective [Unknown]
  - Product use issue [Unknown]
  - Gastroduodenitis [Recovered/Resolved]
  - Skin lesion [Recovering/Resolving]
  - Duodenitis [Recovered/Resolved]

NARRATIVE: CASE EVENT DATE: 2017
